FAERS Safety Report 14662882 (Version 1)
Quarter: 2018Q1

REPORT INFORMATION
  Report Type: Spontaneous
  Country: FR (occurrence: FR)
  Receive Date: 20180321
  Receipt Date: 20180321
  Transmission Date: 20180509
  Serious: Yes (Other)
  Sender: FDA-Public Use
  Company Number: FR-MERCK KGAA-2044187

PATIENT
  Age: 54 Year
  Sex: Male

DRUGS (1)
  1. NOVOTHYROX [Suspect]
     Active Substance: LEVOTHYROXINE SODIUM
     Indication: POST PROCEDURAL HYPOTHYROIDISM
     Dates: start: 201705

REACTIONS (11)
  - Musculoskeletal stiffness [Recovering/Resolving]
  - Loss of personal independence in daily activities [None]
  - Muscle spasms [None]
  - Hypothermia [None]
  - Tension [None]
  - Affect lability [None]
  - Fatigue [None]
  - Weight increased [Not Recovered/Not Resolved]
  - Irritability [None]
  - Myalgia [Recovering/Resolving]
  - Arthralgia [Recovering/Resolving]

NARRATIVE: CASE EVENT DATE: 201706
